FAERS Safety Report 6421718-5 (Version None)
Quarter: 2009Q4

REPORT INFORMATION
  Report Type: 
  Country: None (occurrence: None)
  Receive Date: 20091030
  Receipt Date: 20091027
  Transmission Date: 20100525
  Serious: Yes (Hospitalization)
  Sender: FDA-Public Use
  Company Number: US-ELI_LILLY_AND_COMPANY-US200910007222

PATIENT
  Sex: Female

DRUGS (15)
  1. HUMALOG [Suspect]
     Indication: TYPE 1 DIABETES MELLITUS
     Dosage: 10 U, 4/D
     Dates: start: 19950101
  2. HUMALOG [Suspect]
     Dosage: 12 U, 4/D
  3. HUMALOG [Suspect]
     Dosage: UNK, UNK
     Dates: start: 19950101
  4. DIOVAN [Concomitant]
  5. LASIX [Concomitant]
  6. LEXAPRO [Concomitant]
  7. METOPROLOL [Concomitant]
  8. SIMVASTATIN [Concomitant]
  9. SYNTHROID [Concomitant]
  10. VALIUM [Concomitant]
  11. WELLBUTRIN XL [Concomitant]
  12. ATROPINE [Concomitant]
  13. BETOPTIC [Concomitant]
  14. XALATAN [Concomitant]
  15. LANTUS [Concomitant]

REACTIONS (8)
  - ANKLE FRACTURE [None]
  - CATARACT [None]
  - DECUBITUS ULCER [None]
  - DEPRESSION [None]
  - DIABETIC NEUROPATHY [None]
  - MACULOPATHY [None]
  - SKIN HYPERTROPHY [None]
  - WRONG TECHNIQUE IN DRUG USAGE PROCESS [None]
